FAERS Safety Report 6810976-0 (Version None)
Quarter: 2010Q2

REPORT INFORMATION
  Report Type: 
  Country: None (occurrence: None)
  Receive Date: 20100630
  Receipt Date: 20090115
  Transmission Date: 20101027
  Serious: No
  Sender: FDA-Public Use
  Company Number: US-PFIZER INC-2009155896

PATIENT
  Sex: Female
  Weight: 99 kg

DRUGS (6)
  1. ESTRING [Suspect]
     Indication: HOT FLUSH
  2. ESTRING [Suspect]
     Indication: VULVOVAGINAL DRYNESS
  3. ALBUTEROL [Concomitant]
     Dosage: UNK
  4. MONTELUKAST SODIUM [Concomitant]
     Dosage: UNK
  5. IPRATROPIUM BROMIDE [Concomitant]
     Dosage: UNK
  6. BUDESONIDE [Concomitant]
     Dosage: UNK

REACTIONS (1)
  - DRUG INEFFECTIVE [None]
